FAERS Safety Report 10191159 (Version 2)
Quarter: 2014Q2

REPORT INFORMATION
  Report Type: Spontaneous
  Country: US (occurrence: US)
  Receive Date: 20140523
  Receipt Date: 20140523
  Transmission Date: 20141212
  Serious: Yes (Hospitalization)
  Sender: FDA-Public Use
  Company Number: US-SA-FABR-1003272

PATIENT
  Age: 35 Year
  Sex: Female

DRUGS (1)
  1. AGALSIDASE BETA [Suspect]
     Indication: FABRY^S DISEASE
     Dosage: 105 MG, Q2W
     Route: 042

REACTIONS (2)
  - Sepsis [Not Recovered/Not Resolved]
  - Pain [Not Recovered/Not Resolved]
